FAERS Safety Report 21217800 (Version 1)
Quarter: 2022Q3

REPORT INFORMATION
  Report Type: Spontaneous
  Country: US (occurrence: None)
  Receive Date: 20220815
  Receipt Date: 20220815
  Transmission Date: 20221027
  Serious: No
  Sender: FDA-Public Use
  Company Number: None

PATIENT
  Sex: Female

DRUGS (2)
  1. OPSUMIT [Suspect]
     Active Substance: MACITENTAN
     Indication: Systemic lupus erythematosus
     Dosage: FREQUENCY : DAILY;?
     Route: 048
     Dates: start: 20210717
  2. OPSUMIT [Suspect]
     Active Substance: MACITENTAN
     Indication: Pulmonary hypertension

REACTIONS (2)
  - Drug ineffective [None]
  - Therapy cessation [None]
